FAERS Safety Report 23976912 (Version 1)
Quarter: 2024Q2

REPORT INFORMATION
  Report Type: Spontaneous
  Country: PL (occurrence: None)
  Receive Date: 20240614
  Receipt Date: 20240614
  Transmission Date: 20240716
  Serious: Yes (Hospitalization)
  Sender: FDA-Public Use
  Company Number: 2024A133044

PATIENT
  Age: 15 Year
  Sex: Male
  Weight: 58 kg

DRUGS (1)
  1. QUETIAPINE FUMARATE [Suspect]
     Active Substance: QUETIAPINE FUMARATE
     Dosage: DOSAGE UNKNOWN, UP TO A MAXIMUM OF 25 TABLETS
     Route: 048
     Dates: start: 20240320, end: 20240320

REACTIONS (4)
  - Confusional state [Recovering/Resolving]
  - Toxicity to various agents [Unknown]
  - Somnolence [Recovering/Resolving]
  - Aggression [Recovering/Resolving]

NARRATIVE: CASE EVENT DATE: 20240320
